FAERS Safety Report 4796151-2 (Version None)
Quarter: 2005Q3

REPORT INFORMATION
  Report Type: 
  Country: None (occurrence: None)
  Receive Date: 20050916
  Receipt Date: 20050811
  Transmission Date: 20060218
  Serious: Yes (Hospitalization)
  Sender: FDA-Public Use
  Company Number: US-JNJFOC-20050803401

PATIENT
  Age: 27 Year
  Sex: Female
  Weight: 107.9561 kg

DRUGS (5)
  1. ORTHO EVRA [Suspect]
     Indication: DYSFUNCTIONAL UTERINE BLEEDING
     Dosage: 1 DOSE(S), 3 IN 4 WEEK, TRANSDERMAL
     Route: 062
     Dates: start: 20030201
  2. GAVISCON [Concomitant]
  3. PREVACID [Concomitant]
  4. IMITREX [Concomitant]
  5. CARDURA [Concomitant]

REACTIONS (1)
  - PULMONARY EMBOLISM [None]
